FAERS Safety Report 7130774-0 (Version None)
Quarter: 2010Q4

REPORT INFORMATION
  Report Type: 
  Country: None (occurrence: None)
  Receive Date: 20101201
  Receipt Date: 20101122
  Transmission Date: 20110411
  Serious: Yes (Hospitalization)
  Sender: FDA-Public Use
  Company Number: PT-US-EMD SERONO, INC.-7014395

PATIENT
  Sex: Female
  Weight: 42.5 kg

DRUGS (5)
  1. REBIF [Suspect]
     Indication: MULTIPLE SCLEROSIS
     Dates: start: 20100201, end: 20100701
  2. RIVOTRIL [Concomitant]
     Dates: start: 20100701, end: 20100701
  3. CLOMIPRAMINA [Concomitant]
     Dates: start: 20100701, end: 20100701
  4. BROMAZEPAM [Concomitant]
     Dates: start: 20100701, end: 20100701
  5. RISPERDAL [Concomitant]
     Dates: start: 20100701, end: 20100701

REACTIONS (3)
  - ASTHENIA [None]
  - PANCYTOPENIA [None]
  - WEIGHT DECREASED [None]
